FAERS Safety Report 12267253 (Version 1)
Quarter: 2016Q2

REPORT INFORMATION
  Report Type: Report from Study
  Country: US (occurrence: US)
  Receive Date: 20160414
  Receipt Date: 20160414
  Transmission Date: 20160815
  Serious: Yes (Other)
  Sender: FDA-Public Use
  Company Number: US-PFIZER INC-2016197595

PATIENT
  Sex: Male

DRUGS (3)
  1. TETRACYCLINE HCL [Concomitant]
     Active Substance: TETRACYCLINE HYDROCHLORIDE
     Indication: PYURIA
     Dosage: UNK
     Route: 064
     Dates: start: 196009
  2. TETRACYCLINE HCL [Suspect]
     Active Substance: TETRACYCLINE HYDROCHLORIDE
     Indication: PYURIA
     Dosage: TOTAL DOSE 14.0
     Route: 064
     Dates: start: 196009, end: 196009
  3. GANTRISIN [Concomitant]
     Active Substance: SULFISOXAZOLE ACETYL
     Indication: PYURIA
     Dosage: UNK
     Route: 064
     Dates: start: 196009

REACTIONS (2)
  - Maternal exposure during pregnancy [Unknown]
  - Premature baby [Unknown]

NARRATIVE: CASE EVENT DATE: 19600928
